FAERS Safety Report 6765779-2 (Version None)
Quarter: 2010Q2

REPORT INFORMATION
  Report Type: 
  Country: None (occurrence: None)
  Receive Date: 20100609
  Receipt Date: 20100529
  Transmission Date: 20101027
  Serious: Yes (Other)
  Sender: FDA-Public Use
  Company Number: 2010AP001125

PATIENT
  Age: 51 Year
  Sex: Female

DRUGS (6)
  1. VALPROIC ACID SYRUP [Suspect]
     Indication: CONVULSION
     Dosage: 750 MG;QD
  2. BENZODIAZEPINE  DERIVATIVES [Concomitant]
  3. DIAMORPHINE [Concomitant]
  4. LORAZEPAM [Concomitant]
  5. BUPRENORPHINE HYDROCHLORIDE [Concomitant]
  6. NALOXONE [Concomitant]

REACTIONS (3)
  - DIZZINESS [None]
  - HALLUCINATIONS, MIXED [None]
  - HYPERAMMONAEMIC ENCEPHALOPATHY [None]
